FAERS Safety Report 25417371 (Version 1)
Quarter: 2025Q2

REPORT INFORMATION
  Report Type: Other
  Country: ES (occurrence: ES)
  Receive Date: 20250610
  Receipt Date: 20250610
  Transmission Date: 20250716
  Serious: Yes (Hospitalization)
  Sender: Steriscience PTE
  Company Number: None

PATIENT
  Age: 68 Year
  Sex: Female

DRUGS (4)
  1. AMPICILLIN [Interacting]
     Active Substance: AMPICILLIN
     Indication: Infection prophylaxis
     Route: 042
     Dates: start: 20250128, end: 20250131
  2. MEROPENEM [Interacting]
     Active Substance: MEROPENEM
     Indication: Infection prophylaxis
     Route: 042
     Dates: start: 20250131, end: 20250131
  3. CEFTAZIDIME [Interacting]
     Active Substance: CEFTAZIDIME
     Indication: Infection prophylaxis
     Route: 042
     Dates: start: 20250128, end: 20250131
  4. TEICOPLANIN [Interacting]
     Active Substance: TEICOPLANIN
     Indication: Infection prophylaxis
     Route: 042
     Dates: start: 20250131, end: 20250131

REACTIONS (1)
  - Status epilepticus [None]

NARRATIVE: CASE EVENT DATE: 20250131
